FAERS Safety Report 8548606-2 (Version None)
Quarter: 2012Q3

REPORT INFORMATION
  Report Type: 
  Country: None (occurrence: None)
  Receive Date: 20120720
  Receipt Date: 20120720
  Transmission Date: 20120928
  Serious: Yes (Other)
  Sender: FDA-Public Use
  Company Number: None

PATIENT
  Sex: Female
  Weight: 45.3597 kg

DRUGS (1)
  1. DIPHENHYDRAMINE 50MG/ML WEST-WARD [Suspect]
     Dosage: 50MG ONCE IV BOLUS
     Route: 040

REACTIONS (5)
  - RESTLESSNESS [None]
  - COUGH [None]
  - HYPERHIDROSIS [None]
  - CRYING [None]
  - FORMICATION [None]
